FAERS Safety Report 5812954-7 (Version None)
Quarter: 2008Q3

REPORT INFORMATION
  Report Type: 
  Country: None (occurrence: None)
  Receive Date: 20080717
  Receipt Date: 20070820
  Transmission Date: 20090109
  Serious: No
  Sender: FDA-Public Use
  Company Number: A0671423A

PATIENT
  Age: 80 Year

DRUGS (3)
  1. NICORETTE [Suspect]
  2. ZETIA [Concomitant]
  3. BLOOD PRESSURE MEDICATION [Concomitant]

REACTIONS (2)
  - COUGH [None]
  - INTENTIONAL DRUG MISUSE [None]
